FAERS Safety Report 9717335 (Version 3)
Quarter: 2014Q1

REPORT INFORMATION
  Report Type: Spontaneous
  Country: JP (occurrence: JP)
  Receive Date: 20131127
  Receipt Date: 20140311
  Transmission Date: 20141002
  Serious: Yes (Death, Hospitalization)
  Sender: FDA-Public Use
  Company Number: JP-NAPPMUNDI-GBR-2013-0016412

PATIENT
  Age: 65 Year
  Sex: Male

DRUGS (2)
  1. OXYCODONE HCL IR CAPSULE 5 MG [Suspect]
     Indication: CANCER PAIN
     Dosage: 2.5 MG, TID
     Route: 048
     Dates: start: 20131111, end: 20131111
  2. OXYCODONE HCL PR TABLET 5 MG [Suspect]
     Indication: CANCER PAIN
     Dosage: 5 MG, DAILY
     Route: 048
     Dates: start: 20131111, end: 20131111

REACTIONS (2)
  - Sepsis [Fatal]
  - Rhabdomyolysis [Not Recovered/Not Resolved]
